FAERS Safety Report 7413249-0 (Version None)
Quarter: 2011Q2

REPORT INFORMATION
  Report Type: 
  Country: None (occurrence: None)
  Receive Date: 20110405
  Receipt Date: 20110314
  Transmission Date: 20111010
  Serious: Yes (Other)
  Sender: FDA-Public Use
  Company Number: JPI-P-008051

PATIENT
  Age: 28 Year
  Sex: Female
  Weight: 56.6996 kg

DRUGS (13)
  1. PREGABALIN [Concomitant]
  2. VENLAFAXINE HCL [Concomitant]
  3. HYDROCODONE BITARTRATE AND ACETAMINOPHEN [Suspect]
     Indication: OVARIAN CYST RUPTURED
     Dosage: 7.5 MG/100 MG (7.5 MG/100 MG)
     Dates: start: 20090715, end: 20090720
  4. HYDROCODONE BITARTRATE AND ACETAMINOPHEN [Suspect]
     Indication: PAIN
     Dosage: 7.5 MG/100 MG (7.5 MG/100 MG)
     Dates: start: 20090715, end: 20090720
  5. DEXTROAMPHETAMINE [Suspect]
     Indication: NARCOLEPSY
     Dosage: 5 MG, UP TO 4 TIMES DAILY AS NEEDED
     Dates: start: 20090408
  6. ETHINYL ESTRADIOL AND NORETHINDRONE [Concomitant]
  7. CLONAZEPAM [Concomitant]
  8. XYREM [Suspect]
     Indication: NARCOLEPSY
     Dosage: SEE IMAGE, ORAL
     Route: 048
     Dates: start: 20090702, end: 20090801
  9. XYREM [Suspect]
     Indication: NARCOLEPSY
     Dosage: SEE IMAGE, ORAL
     Route: 048
     Dates: start: 20090605, end: 20090601
  10. XYREM [Suspect]
     Indication: NARCOLEPSY
     Dosage: SEE IMAGE, ORAL
     Route: 048
     Dates: start: 20090601, end: 20090701
  11. XYREM [Suspect]
     Indication: NARCOLEPSY
     Dosage: SEE IMAGE, ORAL
     Route: 048
     Dates: start: 20090811
  12. DEXTROAMPHETAMINE [Suspect]
     Indication: NARCOLEPSY
     Dosage: 15 MG (15 MG, 1 IN 1 D)
     Dates: start: 20090408
  13. DULOXETINE HYDROCHLORIDE [Concomitant]

REACTIONS (17)
  - OVARIAN CYST RUPTURED [None]
  - MUSCLE SPASMS [None]
  - NAUSEA [None]
  - ALOPECIA [None]
  - HEART RATE INCREASED [None]
  - RADIAL NERVE PALSY [None]
  - DECREASED APPETITE [None]
  - ATROPHY [None]
  - WEIGHT DECREASED [None]
  - FIBROMYALGIA [None]
  - CRYING [None]
  - INFLUENZA [None]
  - PNEUMONIA [None]
  - MIGRAINE [None]
  - NEUROPATHY PERIPHERAL [None]
  - BRONCHITIS [None]
  - INTRAOCULAR PRESSURE INCREASED [None]
